FAERS Safety Report 14420513 (Version 1)
Quarter: 2018Q1

REPORT INFORMATION
  Report Type: Spontaneous
  Country: US (occurrence: US)
  Receive Date: 20180122
  Receipt Date: 20180122
  Transmission Date: 20180509
  Serious: Yes (Other)
  Sender: FDA-Public Use
  Company Number: US-ROCHE-1955458

PATIENT
  Age: 48 Year
  Sex: Female

DRUGS (1)
  1. RITUXIMAB. [Suspect]
     Active Substance: RITUXIMAB
     Indication: CASTLEMAN^S DISEASE
     Route: 065

REACTIONS (3)
  - Hypogammaglobulinaemia [Recovering/Resolving]
  - Lung infection [Recovering/Resolving]
  - Sinusitis [Recovering/Resolving]
